FAERS Safety Report 9620997 (Version 2)
Quarter: 2014Q1

REPORT INFORMATION
  Report Type: Spontaneous
  Country: IT (occurrence: IT)
  Receive Date: 20131015
  Receipt Date: 20140210
  Transmission Date: 20141002
  Serious: Yes (Hospitalization)
  Sender: FDA-Public Use
  Company Number: IT-JNJFOC-20131007643

PATIENT
  Age: 69 Year
  Sex: Female

DRUGS (3)
  1. PALEXIA [Suspect]
     Indication: BACK PAIN
     Route: 048
     Dates: start: 20130910, end: 20130913
  2. NIMESULIDE [Suspect]
     Indication: BACK PAIN
     Route: 048
     Dates: start: 20130901, end: 20130913
  3. PANTOPRAZOLE [Concomitant]
     Indication: PRODUCT USED FOR UNKNOWN INDICATION
     Route: 065

REACTIONS (1)
  - Hepatitis [Recovering/Resolving]
